FAERS Safety Report 5986616-X (Version None)
Quarter: 2008Q4

REPORT INFORMATION
  Report Type: 
  Country: None (occurrence: None)
  Receive Date: 20081203
  Receipt Date: 20081127
  Transmission Date: 20090506
  Serious: Yes (Hospitalization)
  Sender: FDA-Public Use
  Company Number: 2007SP002212

PATIENT
  Age: 45 Year
  Sex: Male
  Weight: 69 kg

DRUGS (2)
  1. PEG-INTRON (PEGINTERFERON ALFA-2B) (PEFINTERFERON ALFA-2B) [Suspect]
     Indication: HEPATITIS C
     Dosage: 100 MCG;QW;SC
     Route: 058
     Dates: start: 20060202, end: 20060713
  2. REBETOL [Suspect]
     Indication: HEPATITIS C
     Dosage: 800 MG;QD;PO
     Route: 048
     Dates: start: 20060202, end: 20060719

REACTIONS (1)
  - PEMPHIGUS [None]
